FAERS Safety Report 8062883-6 (Version None)
Quarter: 2012Q1

REPORT INFORMATION
  Report Type: 
  Country: None (occurrence: None)
  Receive Date: 20120123
  Receipt Date: 20120109
  Transmission Date: 20120608
  Serious: Yes (Death, Hospitalization)
  Sender: FDA-Public Use
  Company Number: US-MYLANLABS-2012S1000784

PATIENT
  Age: 48 Year
  Sex: Female

DRUGS (1)
  1. CLOZAPINE [Suspect]
     Dosage: INCREASED BY 100MG TO 600 MG/DAY
     Route: 065

REACTIONS (5)
  - MEGACOLON [None]
  - MENTAL STATUS CHANGES [None]
  - DEPRESSED LEVEL OF CONSCIOUSNESS [None]
  - SEPTIC SHOCK [None]
  - INTESTINAL ISCHAEMIA [None]
